FAERS Safety Report 4312756-7 (Version None)
Quarter: 2004Q1

REPORT INFORMATION
  Report Type: 
  Country: None (occurrence: None)
  Receive Date: 20040302
  Receipt Date: 20040122
  Transmission Date: 20041129
  Serious: No
  Sender: FDA-Public Use
  Company Number: WAES 0401USA01682

PATIENT
  Age: 56 Year
  Sex: Female

DRUGS (14)
  1. CANCIDAS [Suspect]
     Indication: FUNGAL INFECTION
     Dosage: 50 MG/DAILY/IV
     Route: 042
  2. VANCOMYCIN [Suspect]
     Dosage: 1 GM/Q12H/IV
     Route: 042
  3. FLEXERIL [Concomitant]
  4. INDERAL LA [Concomitant]
  5. LIPITOR [Concomitant]
  6. MS CONTIN [Concomitant]
  7. PERCOCET [Concomitant]
  8. PRILOSEC [Concomitant]
  9. VIOXX [Concomitant]
  10. ZANTAC [Concomitant]
  11. ZOLOFT [Concomitant]
  12. ZYPREXA [Concomitant]
  13. GLYBURIDE [Concomitant]
  14. INSULIN [Concomitant]

REACTIONS (1)
  - MEDICATION ERROR [None]
